FAERS Safety Report 20751815 (Version 2)
Quarter: 2022Q4

REPORT INFORMATION
  Report Type: Other
  Country: CA (occurrence: CA)
  Receive Date: 20220426
  Receipt Date: 20221102
  Transmission Date: 20230112
  Serious: Yes (Life-Threatening, Hospitalization, Other)
  Sender: FDA-Public Use
  Company Number: CA-NAPPMUNDI-GBR-2022-0097211

PATIENT
  Age: 20 Month
  Sex: Male
  Weight: 15 kg

DRUGS (3)
  1. MORPHINE SULFATE [Suspect]
     Active Substance: MORPHINE SULFATE
     Indication: Product used for unknown indication
     Dosage: 2 MILLIGRAM
     Route: 048
  2. MORPHINE SULFATE [Suspect]
     Active Substance: MORPHINE SULFATE
     Dosage: 3 MILLIGRAM, AFTER 2 HOURS
     Route: 048
  3. NALOXONE [Suspect]
     Active Substance: NALOXONE
     Indication: Depressed level of consciousness
     Dosage: 0.15 MILLIGRAM
     Route: 065

REACTIONS (11)
  - Accidental overdose [Recovering/Resolving]
  - Ataxia [Recovered/Resolved]
  - Blindness cortical [Recovering/Resolving]
  - Brain oedema [Recovering/Resolving]
  - Drug ineffective [Recovered/Resolved]
  - Dysmetria [Recovered/Resolved]
  - Neurotoxicity [Recovering/Resolving]
  - Toxicity to various agents [Recovering/Resolving]
  - Wrong dose [Recovering/Resolving]
  - Strabismus [Unknown]
  - Somnolence [Recovering/Resolving]
